FAERS Safety Report 6998311-9 (Version None)
Quarter: 2010Q3

REPORT INFORMATION
  Report Type: 
  Country: None (occurrence: None)
  Receive Date: 20100920
  Receipt Date: 20100318
  Transmission Date: 20110219
  Serious: No
  Sender: FDA-Public Use
  Company Number: US-ASTRAZENECA-2010SE11923

PATIENT
  Age: 42 Year
  Sex: Female
  Weight: 78.5 kg

DRUGS (7)
  1. SEROQUEL [Suspect]
     Indication: BIPOLAR DISORDER
     Route: 048
     Dates: start: 20040101
  2. SEROQUEL [Suspect]
     Route: 048
  3. SEROQUEL [Suspect]
     Route: 048
     Dates: end: 20100319
  4. SYNTHROID [Concomitant]
     Indication: THYROID DISORDER
     Dosage: DAILY
     Route: 048
  5. LITHIUM CARBONATE [Concomitant]
     Dosage: DAILY
     Route: 048
  6. ZOLOFT [Concomitant]
     Dosage: DAILY
     Route: 048
  7. XANAX [Concomitant]
     Dosage: PRN
     Route: 048

REACTIONS (8)
  - DRY MOUTH [None]
  - DYSPEPSIA [None]
  - DYSPHAGIA [None]
  - PHARYNGITIS [None]
  - POLLAKIURIA [None]
  - SOMNOLENCE [None]
  - TREMOR [None]
  - WEIGHT INCREASED [None]
